FAERS Safety Report 5247450-1 (Version None)
Quarter: 2007Q1

REPORT INFORMATION
  Report Type: 
  Country: None (occurrence: None)
  Receive Date: 20070223
  Receipt Date: 20070223
  Transmission Date: 20070707
  Serious: Yes (Death)
  Sender: FDA-Public Use
  Company Number: None

PATIENT
  Age: 61 Year
  Sex: Female
  Weight: 57 kg

DRUGS (2)
  1. CLOZAPINE [Suspect]
     Indication: BIPOLAR DISORDER
     Dosage: 100MG BID PO
     Route: 048
     Dates: start: 20060901
  2. CLOZAPINE [Suspect]
     Dosage: 50 MG Q NOON PO
     Route: 048

REACTIONS (11)
  - CARDIOMYOPATHY [None]
  - EJECTION FRACTION DECREASED [None]
  - EOSINOPHILIA [None]
  - GAIT DISTURBANCE [None]
  - GRIP STRENGTH DECREASED [None]
  - INCONTINENCE [None]
  - LIVER FUNCTION TEST ABNORMAL [None]
  - OEDEMA PERIPHERAL [None]
  - PHOTOPHOBIA [None]
  - RED BLOOD CELL SEDIMENTATION RATE INCREASED [None]
  - VOMITING [None]
